FAERS Safety Report 9924577 (Version 1)
Quarter: 2014Q1

REPORT INFORMATION
  Report Type: Spontaneous
  Country: US (occurrence: US)
  Receive Date: 20140226
  Receipt Date: 20140226
  Transmission Date: 20141002
  Serious: No
  Sender: FDA-Public Use
  Company Number: US-PFIZER INC-2014050806

PATIENT
  Age: 71 Year
  Sex: Female
  Weight: 72.56 kg

DRUGS (1)
  1. LYRICA [Suspect]
     Indication: LIMB DISCOMFORT
     Dosage: 50 MG, 2X/DAY
     Dates: end: 201401

REACTIONS (5)
  - Pain in extremity [Unknown]
  - Pain [Unknown]
  - Coordination abnormal [Unknown]
  - Dyskinesia [Unknown]
  - Insomnia [Unknown]
